FAERS Safety Report 22205999 (Version 3)
Quarter: 2023Q2

REPORT INFORMATION
  Report Type: Report from Study
  Country: CO (occurrence: CO)
  Receive Date: 20230413
  Receipt Date: 20230513
  Transmission Date: 20230721
  Serious: Yes (Life-Threatening)
  Sender: FDA-Public Use
  Company Number: CO-002147023-NVSC2023CO085045

PATIENT
  Sex: Male

DRUGS (1)
  1. COSENTYX [Suspect]
     Active Substance: SECUKINUMAB
     Indication: Ankylosing spondylitis
     Dosage: 150 MG, QMO (STARTED ON 10 APR IN AN UNSPECIFIED YEAR)
     Route: 058

REACTIONS (2)
  - Feeling abnormal [Unknown]
  - Pain [Unknown]
